FAERS Safety Report 10023519 (Version 3)
Quarter: 2014Q2

REPORT INFORMATION
  Report Type: Report from Study
  Country: CZ (occurrence: CZ)
  Receive Date: 20140320
  Receipt Date: 20140505
  Transmission Date: 20141212
  Serious: Yes (Hospitalization)
  Sender: FDA-Public Use
  Company Number: CZ-ROCHE-1181618

PATIENT
  Age: 50 Year
  Sex: Female
  Weight: 64 kg

DRUGS (8)
  1. OBINUTUZUMAB [Suspect]
     Indication: LYMPHOMA
     Dosage: LAST DOSE VOLUME TAKEN : 250 ML, LAST DOSE CONCENTRATION: 4 MG/ML
     Route: 042
     Dates: start: 20121003
  2. PREDNISONE [Suspect]
     Indication: LYMPHOMA
     Route: 065
     Dates: start: 20121003
  3. CYCLOPHOSPHAMIDE [Suspect]
     Indication: LYMPHOMA
     Dosage: LAST DOSE TAKEN 1313MG
     Route: 042
     Dates: start: 20121004
  4. DOXORUBICIN [Suspect]
     Indication: LYMPHOMA
     Dosage: LAST DOSE: 88
     Route: 042
     Dates: start: 20121004
  5. VINCRISTINE [Suspect]
     Indication: LYMPHOMA
     Dosage: LAST DOSE TAKEN: 2MG
     Route: 040
     Dates: start: 20121004
  6. HYDROCORTISONE [Concomitant]
     Indication: CHILLS
     Route: 065
     Dates: start: 20121003, end: 20121003
  7. PARALEN [Concomitant]
     Route: 065
     Dates: start: 20121003, end: 20121003
  8. DITHIADEN [Concomitant]
     Route: 065
     Dates: start: 20121003, end: 20121003

REACTIONS (2)
  - Anaemia [Recovered/Resolved]
  - Infusion related reaction [Recovered/Resolved]
